FAERS Safety Report 7515104-4 (Version None)
Quarter: 2011Q2

REPORT INFORMATION
  Report Type: 
  Country: None (occurrence: None)
  Receive Date: 20110601
  Receipt Date: 20091130
  Transmission Date: 20111010
  Serious: Yes (Other)
  Sender: FDA-Public Use
  Company Number: US-BAYER-200941224NA

PATIENT
  Age: 46 Year
  Sex: Female
  Weight: 72.562 kg

DRUGS (59)
  1. TRASYLOL [Suspect]
     Indication: CORONARY ENDARTERECTOMY
     Dosage: 50ML/HOUR
     Route: 042
     Dates: start: 20070307, end: 20070307
  2. TRASYLOL [Suspect]
  3. SIMVASTATIN [Concomitant]
     Dosage: UNK
     Route: 048
     Dates: start: 20010101
  4. ALEVE (CAPLET) [Concomitant]
     Route: 048
  5. AMLODIPINE BESYLATE [Concomitant]
     Dosage: UNK
     Route: 048
     Dates: start: 20010101
  6. FLUOXETINE [Concomitant]
     Dosage: UNK
     Route: 048
     Dates: start: 20060101
  7. NEOSPORIN AF [Concomitant]
     Route: 061
  8. CLOBETASOL PROPIONATE [Concomitant]
     Route: 061
  9. PENTOTHAL [Concomitant]
     Dosage: UNK
     Route: 042
     Dates: start: 20070307, end: 20070307
  10. FENTANYL [Concomitant]
     Dosage: UNK
     Route: 042
     Dates: start: 20070307, end: 20070307
  11. CALCIUM CHLORIDE [Concomitant]
     Dosage: UNK
     Route: 042
     Dates: start: 20070307, end: 20070307
  12. POTASSIUM CHLORIDE [Concomitant]
     Dosage: UNK
     Route: 042
     Dates: start: 20070307, end: 20070307
  13. TRASYLOL [Suspect]
     Indication: CARDIOPULMONARY BYPASS
  14. NORVASC [Concomitant]
     Dosage: 5 MG, QD
     Route: 048
     Dates: start: 20010101
  15. AVANDIA [Concomitant]
     Dosage: 8 MG, QD
  16. VYTORIN [Concomitant]
     Dosage: 10/80 QD, UNK
     Route: 048
     Dates: start: 20050101, end: 20090101
  17. MIDOL LIQUID GELS [Concomitant]
     Dosage: UNK
     Route: 048
     Dates: start: 20010101
  18. VECURONIUM BROMIDE [Concomitant]
     Dosage: UNK
     Route: 042
     Dates: start: 20070307, end: 20070307
  19. TRASYLOL [Suspect]
     Indication: CORONARY ARTERY BYPASS
     Dosage: 200ML BOLUS
     Route: 042
     Dates: start: 20070307, end: 20070307
  20. GLIMEPIRIDE [Concomitant]
     Dosage: UNK
     Route: 048
     Dates: start: 20060101
  21. FUROSEMIDE [Concomitant]
     Dosage: 40 MG, QD
     Route: 048
     Dates: start: 20010101
  22. FENOFIBRATE [Concomitant]
     Dosage: 145 MG, QD
     Route: 048
     Dates: start: 20010101
  23. PROTONIX [Concomitant]
     Dosage: 40 MG, QD
     Dates: start: 20060101
  24. NOVOLOG [Concomitant]
     Dosage: UNK UNK, TID
     Route: 058
     Dates: start: 20060101
  25. DEXAMETHASONE DIPROPIONATE [Concomitant]
  26. DOBUTAMINE HYDROCHLORIDE [Concomitant]
     Dosage: UNK
     Route: 042
     Dates: start: 20070307, end: 20070307
  27. MANNITOL [Concomitant]
     Dosage: UNK
     Route: 042
     Dates: start: 20070307, end: 20070307
  28. MAGNESIUM SULFATE [Concomitant]
     Dosage: UNK
     Route: 042
     Dates: start: 20070307, end: 20070307
  29. ANCEF [Concomitant]
     Dosage: UNK
     Route: 042
     Dates: start: 20070307, end: 20070307
  30. LEVOTHYROXINE SODIUM [Concomitant]
     Dosage: 0.15 MG, QD
     Route: 048
     Dates: start: 20010101
  31. TRAMADOL HCL [Concomitant]
     Dosage: UNK
     Route: 048
     Dates: start: 20060101
  32. ALTACE [Concomitant]
     Dosage: 10 MG, QD
     Route: 048
     Dates: start: 20010101
  33. VERSED [Concomitant]
     Dosage: UNK
     Route: 042
     Dates: start: 20070307, end: 20070307
  34. SIMCORA [Concomitant]
     Dosage: UNK
     Route: 048
     Dates: start: 20010101
  35. TRICOR [Concomitant]
     Dosage: UNK
     Route: 048
     Dates: start: 20010101
  36. BLACK COHOSH [Concomitant]
     Dosage: UNK
     Route: 048
     Dates: start: 20060101
  37. HYDROXYZINE HCL [Concomitant]
     Dosage: UNK
     Route: 048
     Dates: start: 20060101
  38. AMMONIUM LACTATE [Concomitant]
     Dosage: UNK
     Route: 048
     Dates: start: 20010101
  39. IBUPROFEN [Concomitant]
     Dosage: UNK
     Route: 048
     Dates: start: 20060101
  40. ADVIL LIQUI-GELS [Concomitant]
     Dosage: UNK
     Route: 048
     Dates: start: 20010101
  41. TRASYLOL [Suspect]
     Indication: MITRAL VALVE REPAIR
  42. ASPIRIN [Concomitant]
     Dosage: 325 MG, QD
     Route: 048
     Dates: start: 20010101
  43. JANUVIA [Concomitant]
     Dosage: UNK
     Route: 048
     Dates: start: 20060101
  44. NIASPAN [Concomitant]
     Dosage: UNK
     Route: 048
     Dates: start: 20010101
  45. LANTUS [Concomitant]
     Dosage: 50 U, HS
     Route: 058
     Dates: start: 20060101
  46. NITROLINGUAL [Concomitant]
     Indication: CHEST PAIN
     Dosage: 1 SPRAY EVERY 5 MINUTE, PRN
     Route: 060
     Dates: start: 20060101
  47. MOTRIN [Concomitant]
     Dosage: UNK
     Route: 048
     Dates: start: 20010101
  48. SUCCINYLCHOLINE CHLORIDE [Concomitant]
     Dosage: UNK
     Route: 042
     Dates: start: 20070307, end: 20070307
  49. MIDAZOLAM HCL [Concomitant]
     Dosage: UNK
     Route: 042
     Dates: start: 20070307, end: 20070307
  50. NEOSYNEPHRINE [Concomitant]
     Dosage: UNK
     Route: 042
     Dates: start: 20070307, end: 20070307
  51. SOLU-MEDROL [Concomitant]
     Dosage: UNK
     Route: 042
     Dates: start: 20070307, end: 20070307
  52. LASIX [Concomitant]
     Dosage: UNK
     Route: 042
     Dates: start: 20070307, end: 20070307
  53. TRASYLOL [Suspect]
     Indication: STERNOTOMY
     Dosage: 200ML PUMP PRIME DOSE
     Route: 042
     Dates: start: 20070307, end: 20070307
  54. PLAVIX [Concomitant]
     Dosage: 75 MG, QD
     Route: 048
  55. COREG [Concomitant]
     Dosage: 25 MG, BID
     Route: 048
  56. CLOPIDOGREL [Concomitant]
     Dosage: 75 MG, QD
     Route: 048
  57. DETROL LA [Concomitant]
     Dosage: UNK
     Route: 048
     Dates: start: 20060101
  58. LOVAZA [Concomitant]
     Dosage: UNK
     Route: 048
     Dates: start: 20010101
  59. LOPRIL [CAPTOPRIL,HYDROCHLOROTHIAZIDE] [Concomitant]
     Route: 048

REACTIONS (11)
  - RENAL IMPAIRMENT [None]
  - RENAL FAILURE [None]
  - UNEVALUABLE EVENT [None]
  - EMOTIONAL DISTRESS [None]
  - RENAL INJURY [None]
  - PAIN [None]
  - STRESS [None]
  - INJURY [None]
  - ANXIETY [None]
  - FEAR [None]
  - ANHEDONIA [None]
